FAERS Safety Report 13549051 (Version 1)
Quarter: 2017Q2

REPORT INFORMATION
  Report Type: Spontaneous
  Country: GB (occurrence: GB)
  Receive Date: 20170516
  Receipt Date: 20170516
  Transmission Date: 20170830
  Serious: Yes (Other)
  Sender: FDA-Public Use
  Company Number: GB-ACCORD-051379

PATIENT
  Age: 64 Year
  Sex: Male
  Weight: 86.2 kg

DRUGS (4)
  1. SILDENAFIL. [Concomitant]
     Active Substance: SILDENAFIL
  2. METFORMIN [Suspect]
     Active Substance: METFORMIN HYDROCHLORIDE
     Indication: PRODUCT USED FOR UNKNOWN INDICATION
  3. HUMULIN M3 [Suspect]
     Active Substance: INSULIN HUMAN
     Indication: PRODUCT USED FOR UNKNOWN INDICATION
  4. PIOGLITAZONE/PIOGLITAZONE HYDROCHLORIDE [Suspect]
     Active Substance: PIOGLITAZONE HYDROCHLORIDE
     Indication: DIABETES MELLITUS
     Dosage: MORNING
     Route: 048
     Dates: start: 20150519, end: 20170421

REACTIONS (3)
  - Medication monitoring error [Unknown]
  - Cardiac failure [Recovering/Resolving]
  - Acute myocardial infarction [Unknown]

NARRATIVE: CASE EVENT DATE: 20170420
